FAERS Safety Report 13668386 (Version 1)
Quarter: 2017Q2

REPORT INFORMATION
  Report Type: Spontaneous
  Country: PT (occurrence: PT)
  Receive Date: 20170620
  Receipt Date: 20170620
  Transmission Date: 20170830
  Serious: Yes (Life-Threatening)
  Sender: FDA-Public Use
  Company Number: PT-ACCORD-052848

PATIENT
  Age: 56 Year
  Sex: Male

DRUGS (3)
  1. FLUOROURACIL ACCORD [Suspect]
     Active Substance: FLUOROURACIL
     Indication: RECTAL NEOPLASM
     Route: 042
     Dates: start: 20170526, end: 20170528
  2. OXALIPLATIN KABI [Concomitant]
     Active Substance: OXALIPLATIN
     Indication: RECTAL NEOPLASM
     Route: 042
     Dates: start: 20170526, end: 20170526
  3. LEVOFOLIC [Concomitant]
     Active Substance: LEUCOVORIN
     Indication: RECTAL NEOPLASM
     Route: 042
     Dates: start: 20170526, end: 20170526

REACTIONS (2)
  - Arteriospasm coronary [Recovered/Resolved]
  - C-reactive protein abnormal [Recovered/Resolved]

NARRATIVE: CASE EVENT DATE: 20170528
